FAERS Safety Report 20105076 (Version 2)
Quarter: 2022Q1

REPORT INFORMATION
  Report Type: Spontaneous
  Country: US (occurrence: US)
  Receive Date: 20211124
  Receipt Date: 20220302
  Transmission Date: 20220423
  Serious: No
  Sender: FDA-Public Use
  Company Number: US-JNJFOC-20211103301

PATIENT
  Age: 48 Year
  Sex: Female

DRUGS (3)
  1. TYLENOL [Suspect]
     Active Substance: ACETAMINOPHEN
     Indication: Pain
     Route: 065
  2. COVID-19 VACCINE [Concomitant]
     Indication: Product used for unknown indication
     Dosage: LEFT ARM, BOOSTER DOSE, FIRST DOSE
     Route: 065
     Dates: start: 20210116
  3. COVID-19 VACCINE [Concomitant]
     Dosage: SECOND DOSE
     Route: 065
     Dates: start: 20210206

REACTIONS (1)
  - Therapeutic product effect incomplete [Unknown]
